FAERS Safety Report 17969881 (Version 3)
Quarter: 2020Q3

REPORT INFORMATION
  Report Type: Spontaneous
  Country: JP (occurrence: JP)
  Receive Date: 20200701
  Receipt Date: 20200828
  Transmission Date: 20201103
  Serious: Yes (Hospitalization)
  Sender: FDA-Public Use
  Company Number: JP-ASTRAZENECA-2020SE73257

PATIENT
  Age: 70 Year
  Sex: Male
  Weight: 55 kg

DRUGS (10)
  1. PREDONINE [Concomitant]
     Active Substance: PREDNISOLONE
     Indication: ASTHMA
     Dosage: DOSE UNKNOWN, ORAL ADMINISTRATION OF 2 TO 4 TABLETS AS REQUIRED.
     Route: 048
     Dates: end: 20190326
  2. TAKECAB [Concomitant]
     Active Substance: VONOPRAZAN FUMARATE
     Indication: GASTROOESOPHAGEAL REFLUX DISEASE
     Route: 048
     Dates: start: 20190313, end: 20190326
  3. TRAMCET [Concomitant]
     Active Substance: ACETAMINOPHEN\TRAMADOL
     Dosage: DOSE AND FREQUENCY UNKNOWN
     Route: 048
  4. RELVAR [Concomitant]
     Active Substance: FLUTICASONE FUROATE\VILANTEROL TRIFENATATE
     Indication: ASTHMA
     Route: 055
  5. KOLANTYL [Concomitant]
     Active Substance: DICYCLOMINE HYDROCHLORIDE
     Indication: CHRONIC GASTRITIS
     Route: 048
     Dates: start: 20190313, end: 20190326
  6. FASENRA [Suspect]
     Active Substance: BENRALIZUMAB
     Indication: ASTHMA
     Route: 058
     Dates: start: 20190313, end: 20200324
  7. SOLON [Concomitant]
     Active Substance: SOFALCONE
     Indication: CHRONIC GASTRITIS
     Route: 048
     Dates: start: 20190313, end: 20190326
  8. SINGULAIR OD [Concomitant]
     Indication: ASTHMA
     Route: 048
  9. THEOLONG [Concomitant]
     Active Substance: THEOPHYLLINE ANHYDROUS
     Indication: ASTHMA
     Route: 048
  10. FEBURIC [Concomitant]
     Active Substance: FEBUXOSTAT
     Indication: HYPERURICAEMIA
     Route: 048

REACTIONS (8)
  - Decreased appetite [Recovered/Resolved]
  - Adrenal insufficiency [Recovered/Resolved]
  - Lumbar spinal stenosis [Unknown]
  - Headache [Recovered/Resolved]
  - Nausea [Recovered/Resolved]
  - Weight decreased [Recovered/Resolved]
  - Eosinophil count increased [Unknown]
  - Malaise [Recovered/Resolved]

NARRATIVE: CASE EVENT DATE: 20190313
